FAERS Safety Report 6188658-0 (Version None)
Quarter: 2009Q2

REPORT INFORMATION
  Report Type: 
  Country: None (occurrence: None)
  Receive Date: 20090513
  Receipt Date: 20090505
  Transmission Date: 20091009
  Serious: Yes (Death, Other)
  Sender: FDA-Public Use
  Company Number: US-AVENTIS-200817482US

PATIENT
  Sex: Male
  Weight: 104.55 kg

DRUGS (8)
  1. KETEK [Suspect]
     Dosage: DOSE: UNK
     Route: 048
     Dates: start: 20060706
  2. KETEK [Suspect]
     Dosage: DOSE: UNK
     Route: 048
     Dates: start: 20060714
  3. KETEK [Suspect]
     Dosage: DOSE: UNK
     Route: 048
     Dates: start: 20060726
  4. ROCEPHIN [Concomitant]
     Route: 030
     Dates: start: 20060729
  5. BIAXIN XL [Concomitant]
     Dosage: DOSE: 2 TABS FOR 10 DAYS
     Route: 048
     Dates: start: 20060729
  6. MEDROL [Concomitant]
     Dosage: DOSE: UNK
  7. ATUSS MR [Concomitant]
     Dosage: DOSE: 1-2 TEASPOON EVERY 4-6 HOURS
  8. DEPO-MEDROL [Concomitant]
     Route: 030
     Dates: start: 20060729

REACTIONS (5)
  - ACUTE MYOCARDIAL INFARCTION [None]
  - BLOOD BILIRUBIN INCREASED [None]
  - CARDIOGENIC SHOCK [None]
  - HEPATITIS ACUTE [None]
  - LIVER FUNCTION TEST ABNORMAL [None]
